FAERS Safety Report 9215781 (Version 2)
Quarter: 2013Q2

REPORT INFORMATION
  Report Type: Spontaneous
  Country: US (occurrence: US)
  Receive Date: 20130408
  Receipt Date: 20130527
  Transmission Date: 20140414
  Serious: No
  Sender: FDA-Public Use
  Company Number: US-009507513-1303USA012319

PATIENT
  Age: 58 Year
  Sex: Male

DRUGS (5)
  1. VICTRELIS [Suspect]
     Indication: HEPATITIS C
     Dosage: 800MG THREE TIMES DAILY, 7 TO 9 HOURS APART (FIRST SHIPPED 07-MAR-2013)
     Route: 048
     Dates: start: 20130315
  2. RIBAPAK [Suspect]
     Dosage: 600 MG, BID
     Route: 048
     Dates: start: 2013
  3. RIBAPAK [Suspect]
     Dosage: 400 MG, UNK
     Route: 048
  4. PEGASYS [Suspect]
     Dosage: 180 MICROGRAM, QW
     Route: 058
  5. PEGASYS [Suspect]
     Dosage: 135 MICROGRAM, QW
     Route: 058

REACTIONS (4)
  - Chromaturia [Not Recovered/Not Resolved]
  - Nausea [Not Recovered/Not Resolved]
  - Influenza like illness [Not Recovered/Not Resolved]
  - Anaemia [Not Recovered/Not Resolved]
